FAERS Safety Report 18927025 (Version 1)
Quarter: 2021Q1

REPORT INFORMATION
  Report Type: Spontaneous
  Country: US (occurrence: US)
  Receive Date: 20210222
  Receipt Date: 20210222
  Transmission Date: 20210420
  Serious: Yes (Other)
  Sender: FDA-Public Use
  Company Number: None

PATIENT
  Age: 49 Year
  Sex: Male

DRUGS (1)
  1. MONTELUKAST TAB [Suspect]
     Active Substance: MONTELUKAST SODIUM
     Indication: ASTHMA
     Route: 048
     Dates: start: 20201203, end: 20210220

REACTIONS (2)
  - Musculoskeletal disorder [None]
  - Musculoskeletal chest pain [None]

NARRATIVE: CASE EVENT DATE: 20201203
